FAERS Safety Report 6567310-3 (Version None)
Quarter: 2010Q1

REPORT INFORMATION
  Report Type: 
  Country: None (occurrence: None)
  Receive Date: 20100202
  Receipt Date: 20100120
  Transmission Date: 20100710
  Serious: Yes (Other)
  Sender: FDA-Public Use
  Company Number: PHHY2008JP08845

PATIENT
  Age: 47 Year
  Sex: Male

DRUGS (9)
  1. SANDOSTATIN [Suspect]
     Indication: ACROMEGALY
     Dosage: 50 UG PER DAY
     Dates: start: 20030201, end: 20040521
  2. INSULIN [Concomitant]
     Dosage: UNK
     Dates: start: 20060101
  3. INSULIN [Concomitant]
     Dosage: 26 IU/DAY
  4. PIOGLITAZONE [Concomitant]
     Dosage: 30 MG PER DAY
  5. BROMOCRIPTINE [Concomitant]
     Dosage: 10 MG DAILY
  6. GLIBENCLAMIDE [Concomitant]
     Dosage: 0.625 MG DAILY
     Route: 048
  7. VOGLIBOSE [Concomitant]
     Dosage: 0.6 MG PER DAY
     Route: 048
  8. PEGVISOMANT [Concomitant]
     Dosage: 10 MG PER DAY
     Route: 058
     Dates: start: 20070801
  9. PEGVISOMANT [Concomitant]
     Dosage: 15 MG PER DAY

REACTIONS (4)
  - DRUG INEFFECTIVE [None]
  - NAUSEA [None]
  - NEPHROPATHY [None]
  - VOMITING [None]
